FAERS Safety Report 9402382 (Version 1)
Quarter: 2013Q3

REPORT INFORMATION
  Report Type: Spontaneous
  Country: PE (occurrence: PE)
  Receive Date: 20130716
  Receipt Date: 20130716
  Transmission Date: 20140515
  Serious: Yes (Other)
  Sender: FDA-Public Use
  Company Number: PE-PFIZER INC-2013204985

PATIENT
  Age: 77 Year
  Sex: Male

DRUGS (2)
  1. ACCUPRIL [Suspect]
     Dosage: 20 MG, UNK
     Route: 048
  2. CARDURA XL [Suspect]
     Dosage: 4 MG, UNK
     Route: 048

REACTIONS (2)
  - Wrist fracture [Unknown]
  - Fall [Unknown]
